FAERS Safety Report 5521264-7 (Version None)
Quarter: 2007Q4

REPORT INFORMATION
  Report Type: 
  Country: None (occurrence: None)
  Receive Date: 20071119
  Receipt Date: 20071115
  Transmission Date: 20080405
  Serious: Yes (Life-Threatening)
  Sender: FDA-Public Use
  Company Number: NZ-ROXANE LABORATORIES, INC-2007-DE-06785GD

PATIENT
  Age: 53 Year
  Sex: Female
  Weight: 58 kg

DRUGS (9)
  1. MORPHINE [Suspect]
     Indication: POSTOPERATIVE ANALGESIA
     Dosage: 0.4 MG (6.89 MCG/KG) IN 1 ML
     Route: 037
  2. MORPHINE [Suspect]
     Dosage: 3 MG INTRAOPERATIVELY (AT END OF SURGERY); 4 MG DURING STAY IN THE RECOVERY ROOM; 1.5 MG BOLUS IN TH
     Route: 042
  3. REMIFENTANIL [Suspect]
     Indication: INDUCTION AND MAINTENANCE OF ANAESTHESIA
     Dosage: 0.25 MCG/KG/MIN (ANESTHESIA INDUCTION); 0.07-0.25 MCG/KG/MIN (ANESTHESIA MAINTENANCE)
  4. MIDAZOLAM HCL [Concomitant]
     Indication: INDUCTION OF ANAESTHESIA
  5. PROPOFOL [Concomitant]
     Indication: INDUCTION OF ANAESTHESIA
  6. ROCURONIUM BROMIDE [Concomitant]
     Indication: INDUCTION OF ANAESTHESIA
  7. SEVOFLURANE [Concomitant]
     Indication: MAINTENANCE OF ANAESTHESIA
  8. BUPIVACAINE HYDROCHLORIDE [Concomitant]
     Indication: POSTOPERATIVE ANALGESIA
     Dosage: 5 MG IN 1 ML
     Route: 037
  9. PAROXETINE [Concomitant]
     Indication: DEPRESSION

REACTIONS (4)
  - HYPERCAPNIA [None]
  - LOSS OF CONSCIOUSNESS [None]
  - RESPIRATORY ACIDOSIS [None]
  - RESPIRATORY DEPRESSION [None]
